FAERS Safety Report 4851979-5 (Version None)
Quarter: 2005Q4

REPORT INFORMATION
  Report Type: 
  Country: None (occurrence: None)
  Receive Date: 20051213
  Receipt Date: 20051202
  Transmission Date: 20060501
  Serious: Yes (Hospitalization)
  Sender: FDA-Public Use
  Company Number: 2005GB02366

PATIENT
  Age: 62 Year
  Sex: Female

DRUGS (3)
  1. ZESTRIL [Suspect]
     Indication: AORTIC DISORDER
     Route: 048
     Dates: start: 19980101
  2. METFORMIN [Suspect]
     Route: 065
  3. WARFARIN SODIUM [Concomitant]
     Dosage: TAKEN AT 6PM

REACTIONS (7)
  - BLOOD PRESSURE INCREASED [None]
  - DIARRHOEA [None]
  - DIZZINESS [None]
  - GAIT DISTURBANCE [None]
  - MIGRAINE [None]
  - PAIN [None]
  - VISUAL DISTURBANCE [None]
